FAERS Safety Report 9924803 (Version 1)
Quarter: 2014Q1

REPORT INFORMATION
  Report Type: Spontaneous
  Country: CH (occurrence: CH)
  Receive Date: 20140226
  Receipt Date: 20140226
  Transmission Date: 20141002
  Serious: Yes (Death, Hospitalization)
  Sender: FDA-Public Use
  Company Number: CH-MYLANLABS-2014S1003624

PATIENT
  Age: 41 Year
  Sex: Male

DRUGS (5)
  1. COLCHICINE [Suspect]
     Indication: INTENTIONAL OVERDOSE
     Dosage: DF = 1MG TABLET
     Route: 048
  2. PARACETAMOL [Suspect]
     Indication: INTENTIONAL OVERDOSE
     Route: 048
  3. ALLOPURINOL [Suspect]
     Indication: INTENTIONAL OVERDOSE
     Dosage: DF = 100MG TABLET
     Route: 048
  4. ALLOPURINOL [Suspect]
     Indication: OFF LABEL USE
     Dosage: DF = 100MG TABLET
     Route: 048
  5. ACEMETACIN [Suspect]
     Indication: INTENTIONAL OVERDOSE
     Dosage: DF = 60MG TABLET
     Route: 048

REACTIONS (18)
  - Intentional overdose [Fatal]
  - Toxicity to various agents [Fatal]
  - Abdominal pain [Unknown]
  - Vomiting [Unknown]
  - Diarrhoea [Unknown]
  - Headache [Unknown]
  - Anaemia [Unknown]
  - Melaena [Unknown]
  - Renal failure acute [Unknown]
  - Hypoglycaemia [Unknown]
  - Hepatic failure [Unknown]
  - Metabolic acidosis [Unknown]
  - Hepatitis [Unknown]
  - Pancreatitis [Unknown]
  - Gastrointestinal haemorrhage [Unknown]
  - Pancytopenia [Unknown]
  - Coagulopathy [Unknown]
  - Multi-organ failure [Unknown]
